FAERS Safety Report 12774660 (Version 2)
Quarter: 2016Q3

REPORT INFORMATION
  Report Type: Spontaneous
  Country: FR (occurrence: FR)
  Receive Date: 20160923
  Receipt Date: 20160928
  Transmission Date: 20161109
  Serious: Yes (Hospitalization)
  Sender: FDA-Public Use
  Company Number: PHHY2016FR129091

PATIENT
  Age: 55 Year
  Sex: Male

DRUGS (1)
  1. TOBI [Suspect]
     Active Substance: TOBRAMYCIN
     Indication: PSEUDOMONAS INFECTION
     Dosage: UNK
     Route: 065

REACTIONS (3)
  - Renal impairment [Not Recovered/Not Resolved]
  - Drug resistance [Not Recovered/Not Resolved]
  - Treatment failure [Unknown]
